FAERS Safety Report 8814830 (Version 1)
Quarter: 2012Q4

REPORT INFORMATION
  Report Type: 
  Country: US (occurrence: US)
  Receive Date: 20120928
  Receipt Date: 20120928
  Transmission Date: 20130627
  Serious: No
  Sender: FDA-Public Use
  Company Number: US-ASTRAZENECA-2012SE72258

PATIENT
  Age: 80 Year
  Sex: Female
  Weight: 65.8 kg

DRUGS (2)
  1. NEXIUM [Suspect]
     Indication: GASTROOESOPHAGEAL REFLUX DISEASE
     Route: 048
     Dates: start: 201208, end: 20120912
  2. LISINOPRIL [Suspect]
     Indication: HYPERTENSION
     Route: 048

REACTIONS (3)
  - Gastrooesophageal reflux disease [Unknown]
  - Hyperhidrosis [Not Recovered/Not Resolved]
  - Drug dose omission [Unknown]
